FAERS Safety Report 7210364-1 (Version None)
Quarter: 2011Q1

REPORT INFORMATION
  Report Type: 
  Country: None (occurrence: None)
  Receive Date: 20110105
  Receipt Date: 20101222
  Transmission Date: 20110831
  Serious: Yes (Hospitalization)
  Sender: FDA-Public Use
  Company Number: PHHY2010US87627

PATIENT
  Age: 79 Year
  Sex: Female

DRUGS (15)
  1. ASPIRIN [Concomitant]
  2. NASONEX [Concomitant]
  3. VITAMIN-MINERAL COMPOUND TAB [Concomitant]
  4. SINGULAIR [Concomitant]
  5. LEXAPRO [Concomitant]
  6. CITRACAL [Concomitant]
  7. DIURETICS [Suspect]
     Dosage: 25 MG
  8. COQ10 [Concomitant]
  9. CARVEDILOL [Concomitant]
  10. DIOVAN [Suspect]
  11. CENTRUM [Concomitant]
  12. LOVAZA [Concomitant]
  13. ZYRTEC [Concomitant]
  14. SIMVASTATIN [Concomitant]
  15. NEXIUM [Concomitant]

REACTIONS (2)
  - BLOOD ELECTROLYTES DECREASED [None]
  - DEHYDRATION [None]
